FAERS Safety Report 7624972-7 (Version None)
Quarter: 2011Q3

REPORT INFORMATION
  Report Type: 
  Country: None (occurrence: None)
  Receive Date: 20110721
  Receipt Date: 20110713
  Transmission Date: 20111222
  Serious: Yes (Hospitalization, Other)
  Sender: FDA-Public Use
  Company Number: US-BIOGENIDEC-2011BI018343

PATIENT
  Age: 53 Year
  Sex: Female

DRUGS (16)
  1. TYSABRI [Suspect]
     Indication: MULTIPLE SCLEROSIS
     Route: 042
     Dates: start: 20070308, end: 20110414
  2. ZANAFLEX [Concomitant]
  3. SLIDING SCALE INSULIN [Concomitant]
  4. ZOLOFT [Concomitant]
  5. BACLOFEN [Concomitant]
  6. LEVOTHYROXINE SODIUM [Concomitant]
  7. ASPIRIN [Concomitant]
  8. ZANAFLEX [Concomitant]
  9. XANAX [Concomitant]
     Dates: start: 20110701
  10. PANTOPRAZOLE [Concomitant]
  11. OXYBUTYNIN [Concomitant]
  12. NITROFURANTOIN [Concomitant]
  13. BACLOFEN [Concomitant]
  14. ZOVIRAX [Concomitant]
  15. SUPPLEMENTS (NOS) [Concomitant]
  16. LOVENOX [Concomitant]
     Indication: THROMBOSIS PROPHYLAXIS
     Dates: start: 20110701

REACTIONS (3)
  - PROGRESSIVE MULTIFOCAL LEUKOENCEPHALOPATHY [None]
  - IMMUNE RECONSTITUTION SYNDROME [None]
  - MULTIPLE SCLEROSIS RELAPSE [None]
